FAERS Safety Report 21554622 (Version 3)
Quarter: 2022Q4

REPORT INFORMATION
  Report Type: Spontaneous
  Country: DZ (occurrence: DZ)
  Receive Date: 20221104
  Receipt Date: 20221128
  Transmission Date: 20230113
  Serious: Yes (Death, Life-Threatening, Hospitalization, Other)
  Sender: FDA-Public Use
  Company Number: DZ-AMGEN-DZASP2022185760

PATIENT
  Age: 55 Year
  Sex: Male
  Weight: 98 kg

DRUGS (7)
  1. NEUPOGEN [Suspect]
     Active Substance: FILGRASTIM
     Indication: Prophylaxis
     Dosage: 48 INTERNATIONAL UNIT, 24 HOURS AFTER CHEMO CYCLE FOR 5 DAYS
     Route: 058
     Dates: start: 20220920, end: 20220924
  2. NEUPOGEN [Suspect]
     Active Substance: FILGRASTIM
  3. PEGFILGRASTIM [Suspect]
     Active Substance: PEGFILGRASTIM
     Indication: Prophylaxis
     Dosage: 6 MILLIGRAM, 24 HOURS AFTER CHEMO CYCLE
     Route: 058
     Dates: start: 202210, end: 202210
  4. CARBOPLATIN [Suspect]
     Active Substance: CARBOPLATIN
     Indication: Non-small cell lung cancer
     Dosage: 450 MILLIGRAM, Q3WK
     Route: 065
     Dates: start: 20220919, end: 20221017
  5. CARBOPLATIN [Suspect]
     Active Substance: CARBOPLATIN
     Indication: Adenocarcinoma
  6. PEMETREXED [Suspect]
     Active Substance: PEMETREXED
     Indication: Non-small cell lung cancer
     Dosage: 450 MILLIGRAM, Q3WK
     Route: 065
     Dates: start: 20220919, end: 20221017
  7. PEMETREXED [Suspect]
     Active Substance: PEMETREXED
     Indication: Adenocarcinoma

REACTIONS (1)
  - Neutropenia [Fatal]

NARRATIVE: CASE EVENT DATE: 20221023
